FAERS Safety Report 5979194-2 (Version None)
Quarter: 2008Q4

REPORT INFORMATION
  Report Type: 
  Country: None (occurrence: None)
  Receive Date: 20081204
  Receipt Date: 20080429
  Transmission Date: 20090506
  Serious: No
  Sender: FDA-Public Use
  Company Number: US-ABBOTT-08P-163-0449189-00

PATIENT
  Sex: Male
  Weight: 81.72 kg

DRUGS (10)
  1. TRICOR [Suspect]
     Indication: CARDIOVASCULAR EVENT PROPHYLAXIS
     Dosage: 145 MG
     Route: 048
     Dates: start: 20040101
  2. TRICOR [Suspect]
     Indication: BLOOD CHOLESTEROL ABNORMAL
  3. LANSOPRAZOLE [Concomitant]
     Indication: GASTROOESOPHAGEAL REFLUX DISEASE
     Route: 048
     Dates: start: 19900101
  4. XALATAN EYE GTTS [Concomitant]
     Indication: BORDERLINE GLAUCOMA
     Dosage: .005% EVENINGS
     Dates: start: 19900101
  5. VERAPAMIL [Concomitant]
     Indication: CARDIAC DISORDER
     Route: 048
     Dates: start: 20040101
  6. VERAPAMIL HYDROCHLORIDE [Concomitant]
     Indication: BLOOD PRESSURE
     Route: 048
     Dates: start: 20040101
  7. PIOGLITAZONE [Concomitant]
     Indication: BLOOD GLUCOSE ABNORMAL
     Route: 048
     Dates: start: 20050101
  8. LISINOPRIL [Concomitant]
     Indication: CARDIAC DISORDER
     Route: 048
     Dates: start: 20040101
  9. ACETYLSALICYLIC ACID SRT [Concomitant]
     Indication: ANTICOAGULANT THERAPY
     Route: 048
     Dates: start: 20040101
  10. METHIMAZOLE [Concomitant]
     Indication: THYROID DISORDER
     Route: 048
     Dates: start: 20080101

REACTIONS (6)
  - ARTHRALGIA [None]
  - FATIGUE [None]
  - GAIT DISTURBANCE [None]
  - MUSCLE SPASMS [None]
  - MUSCULOSKELETAL PAIN [None]
  - PAIN IN EXTREMITY [None]
